FAERS Safety Report 20335205 (Version 1)
Quarter: 2022Q1

REPORT INFORMATION
  Report Type: Report from Study
  Country: FR (occurrence: None)
  Receive Date: 20220114
  Receipt Date: 20220114
  Transmission Date: 20220424
  Serious: Yes (Hospitalization)
  Sender: FDA-Public Use
  Company Number: FR-ROCHE-2998303

PATIENT
  Age: 67 Year
  Sex: Female

DRUGS (6)
  1. CAPECITABINE [Suspect]
     Active Substance: CAPECITABINE
     Indication: Colorectal cancer metastatic
     Dosage: 1600 MILLIGRAM EVERY 1 CYCLE(S)
     Route: 041
     Dates: start: 20201207
  2. OXALIPLATIN [Suspect]
     Active Substance: OXALIPLATIN
     Indication: Colorectal cancer metastatic
     Dosage: 137 MILLIGRAM EVERY 1 CYCLE(S)
     Route: 041
     Dates: start: 20201207, end: 20210322
  3. ATEZOLIZUMAB [Suspect]
     Active Substance: ATEZOLIZUMAB
     Indication: Colorectal cancer metastatic
     Dosage: 1200 MILLIGRAM EVERY 1CYCLE(S)
     Route: 041
     Dates: start: 20201207, end: 20211227
  4. BEVACIZUMAB [Suspect]
     Active Substance: BEVACIZUMAB
     Indication: Colorectal cancer metastatic
     Dosage: 387 MILLIGRAM EVERY 1 CYCLE(S)
     Route: 041
     Dates: start: 20210208, end: 20211227
  5. YTTRIUM CHLORIDE Y-90 [Suspect]
     Active Substance: YTTRIUM CHLORIDE Y-90
     Indication: Colorectal cancer metastatic
     Dosage: 2.23 GIGABECQUEREL EVERY 1 CYCLE(S)
     Route: 041
     Dates: start: 20210121, end: 20210121
  6. INNOHEP [Concomitant]
     Active Substance: TINZAPARIN SODIUM
     Indication: Hepatic vein thrombosis
     Dates: start: 202108

REACTIONS (1)
  - Cerebrovascular accident [Unknown]

NARRATIVE: CASE EVENT DATE: 20220103
